FAERS Safety Report 5495512-6 (Version None)
Quarter: 2007Q4

REPORT INFORMATION
  Report Type: 
  Country: None (occurrence: None)
  Receive Date: 20071023
  Receipt Date: 20071009
  Transmission Date: 20080405
  Serious: Yes (Other)
  Sender: FDA-Public Use
  Company Number: CERD-10016

PATIENT
  Sex: Female

DRUGS (1)
  1. CEREDASE [Suspect]
     Indication: GAUCHER'S DISEASE
     Dates: start: 19960401, end: 19980101

REACTIONS (3)
  - ABORTION SPONTANEOUS [None]
  - DRUG EXPOSURE DURING PREGNANCY [None]
  - PREGNANCY [None]
